FAERS Safety Report 15843843 (Version 1)
Quarter: 2019Q1

REPORT INFORMATION
  Report Type: Spontaneous
  Country: ES (occurrence: ES)
  Receive Date: 20190118
  Receipt Date: 20190118
  Transmission Date: 20190417
  Serious: Yes (Life-Threatening, Hospitalization)
  Sender: FDA-Public Use
  Company Number: ES-MYLANLABS-2019M1003722

PATIENT
  Age: 33 Year
  Sex: Female

DRUGS (3)
  1. PROPOFOL. [Concomitant]
     Active Substance: PROPOFOL
     Indication: SURGERY
     Dosage: QD, SP
     Route: 042
     Dates: start: 20171120, end: 20171120
  2. AMCHAFIBRIN 500 MG SOLUCI?N INYECTABLE [Suspect]
     Active Substance: TRANEXAMIC ACID
     Indication: PROCEDURAL HAEMORRHAGE
     Dosage: 1000 MILLIGRAM, TOTAL, SP
     Route: 042
     Dates: start: 20171120, end: 20171120
  3. REMIFENTANILO                      /01229901/ [Concomitant]
     Dosage: QD, SP
     Route: 042
     Dates: start: 20171120, end: 20171120

REACTIONS (4)
  - Renal infarct [Recovered/Resolved]
  - Splenic infarction [Recovered/Resolved]
  - Pulmonary embolism [Recovered/Resolved with Sequelae]
  - Cerebral infarction [Recovered/Resolved with Sequelae]

NARRATIVE: CASE EVENT DATE: 20171120
